FAERS Safety Report 21284624 (Version 1)
Quarter: 2022Q3

REPORT INFORMATION
  Report Type: Spontaneous
  Country: DK (occurrence: DK)
  Receive Date: 20220902
  Receipt Date: 20220902
  Transmission Date: 20221026
  Serious: Yes (Death)
  Sender: FDA-Public Use
  Company Number: None

PATIENT
  Age: 72 Year
  Sex: Male

DRUGS (8)
  1. ALTEPLASE [Suspect]
     Active Substance: ALTEPLASE
     Indication: Cerebrovascular accident
     Route: 042
     Dates: start: 20220808
  2. LOSARTAN [Concomitant]
     Active Substance: LOSARTAN
     Indication: Hypertension
     Dates: start: 20220421
  3. METOPROLOL SUCCINATE [Concomitant]
     Active Substance: METOPROLOL SUCCINATE
     Indication: Migraine prophylaxis
     Dates: start: 20200609
  4. CENTYL MITE MED KALIUMKLORID [Concomitant]
     Indication: Diuretic therapy
     Dates: start: 20220421
  5. ALLOPURINOL [Concomitant]
     Active Substance: ALLOPURINOL
     Indication: Gouty arthritis
     Dates: start: 20220522
  6. ATORVASTATIN [Concomitant]
     Active Substance: ATORVASTATIN
     Indication: Cardiovascular disorder
     Dates: start: 20200619
  7. CLOPIDOGREL [Concomitant]
     Active Substance: CLOPIDOGREL BISULFATE
     Indication: Thrombosis prophylaxis
     Dates: start: 20200812
  8. ACETAMINOPHEN [Concomitant]
     Active Substance: ACETAMINOPHEN
     Indication: Pain
     Dates: start: 20220803

REACTIONS (8)
  - Neurologic neglect syndrome [Fatal]
  - Gaze palsy [Fatal]
  - Cerebral haemorrhage [Fatal]
  - Depressed level of consciousness [Fatal]
  - Subarachnoid haemorrhage [Fatal]
  - Restlessness [Fatal]
  - Cerebral infarction [Fatal]
  - Respiratory arrest [Fatal]

NARRATIVE: CASE EVENT DATE: 20220808
